FAERS Safety Report 10023464 (Version 1)
Quarter: 2014Q1

REPORT INFORMATION
  Report Type: Spontaneous
  Country: FR (occurrence: FR)
  Receive Date: 20140320
  Receipt Date: 20140320
  Transmission Date: 20141002
  Serious: Yes (Death)
  Sender: FDA-Public Use
  Company Number: FR-CELGENEUS-056-50794-14030805

PATIENT
  Age: 81 Year
  Sex: Male

DRUGS (2)
  1. VIDAZA [Suspect]
     Indication: NEOPLASM
     Dosage: 75 MILLIGRAM/SQ. METER
     Route: 058
  2. VIDAZA [Suspect]
     Indication: MYELODYSPLASTIC SYNDROME

REACTIONS (3)
  - Pulmonary sepsis [Fatal]
  - Neutropenia [Unknown]
  - Therapeutic response unexpected [Unknown]
